FAERS Safety Report 7998514-0 (Version None)
Quarter: 2011Q4

REPORT INFORMATION
  Report Type: 
  Country: None (occurrence: None)
  Receive Date: 20111221
  Receipt Date: 20111215
  Transmission Date: 20120403
  Serious: Yes (Death)
  Sender: FDA-Public Use
  Company Number: US-JNJFOC-NSADSS2002032844

PATIENT
  Age: 16 Year

DRUGS (5)
  1. SUDAFED 24 HOUR [Suspect]
     Route: 048
  2. IMITREX [Suspect]
     Route: 048
     Dates: start: 20011229, end: 20011229
  3. SUDAFED 24 HOUR [Suspect]
     Indication: PRODUCT USED FOR UNKNOWN INDICATION
     Route: 048
     Dates: start: 20011229, end: 20011229
  4. ZOMIG [Suspect]
     Indication: PRODUCT USED FOR UNKNOWN INDICATION
     Route: 048
     Dates: start: 20011229, end: 20011229
  5. IMITREX [Suspect]
     Indication: PRODUCT USED FOR UNKNOWN INDICATION
     Route: 048
     Dates: start: 20011201, end: 20011201

REACTIONS (10)
  - RESPIRATORY DISORDER [None]
  - PUPIL FIXED [None]
  - APNOEA [None]
  - MYDRIASIS [None]
  - CARDIAC ARREST [None]
  - LETHARGY [None]
  - BRAIN OEDEMA [None]
  - VOMITING [None]
  - BRAIN DEATH [None]
  - COMPLETED SUICIDE [None]
